FAERS Safety Report 6827240-6 (Version None)
Quarter: 2010Q3

REPORT INFORMATION
  Report Type: 
  Country: None (occurrence: None)
  Receive Date: 20100709
  Receipt Date: 20100628
  Transmission Date: 20110219
  Serious: Yes (Hospitalization)
  Sender: FDA-Public Use
  Company Number: FR-WYE-H15973210

PATIENT
  Sex: Female

DRUGS (2)
  1. INIPOMP [Suspect]
     Route: 042
     Dates: start: 20100320, end: 20100401
  2. ROCEPHIN [Suspect]
     Indication: ENTEROBACTER INFECTION
     Route: 042
     Dates: start: 20100320, end: 20100326

REACTIONS (1)
  - NEUTROPENIA [None]
